FAERS Safety Report 5694311-X (Version None)
Quarter: 2008Q2

REPORT INFORMATION
  Report Type: 
  Country: None (occurrence: None)
  Receive Date: 20080404
  Receipt Date: 20080328
  Transmission Date: 20081010
  Serious: Yes (Other)
  Sender: FDA-Public Use
  Company Number: BR-ASTRAZENECA-2008UW06416

PATIENT
  Age: 43 Year
  Sex: Female
  Weight: 62 kg

DRUGS (2)
  1. ZOLADEX [Suspect]
     Indication: UTERINE LEIOMYOMA
     Route: 058
     Dates: start: 20070816, end: 20071013
  2. CICLO 21 [Concomitant]

REACTIONS (17)
  - ACCIDENTAL OVERDOSE [None]
  - AMENORRHOEA [None]
  - BONE PAIN [None]
  - BREAST ENLARGEMENT [None]
  - DEPRESSION [None]
  - DYSURIA [None]
  - FATIGUE [None]
  - HEADACHE [None]
  - HOT FLUSH [None]
  - HYPERHIDROSIS [None]
  - INCORRECT DOSE ADMINISTERED [None]
  - OESTRADIOL DECREASED [None]
  - PAIN IN EXTREMITY [None]
  - VAGINAL HAEMORRHAGE [None]
  - VARICOSE VEIN [None]
  - VASCULAR RUPTURE [None]
  - WEIGHT INCREASED [None]
